FAERS Safety Report 4626009-0 (Version None)
Quarter: 2005Q2

REPORT INFORMATION
  Report Type: 
  Country: None (occurrence: None)
  Receive Date: 20050404
  Receipt Date: 20050322
  Transmission Date: 20051028
  Serious: Yes (Hospitalization)
  Sender: FDA-Public Use
  Company Number: JP-JNJFOC-20041008024

PATIENT
  Sex: Female

DRUGS (11)
  1. RISPERDAL [Suspect]
     Route: 049
  2. RISPERDAL [Suspect]
     Indication: SCHIZOPHRENIA
     Route: 049
  3. PHENOBARB [Suspect]
     Indication: DRUG USE FOR UNKNOWN INDICATION
  4. CHLORPROMAZINE PROMETHAZINE [Suspect]
  5. CHLORPROMAZINE PROMETHAZINE [Suspect]
  6. CHLORPROMAZINE PROMETHAZINE [Suspect]
     Indication: SCHIZOPHRENIA
  7. NITRAZEPAM [Concomitant]
  8. NITRAZEPAM [Concomitant]
  9. SENNOSIDE [Concomitant]
     Indication: CONSTIPATION
  10. FLUNITRAZEPAM [Concomitant]
     Indication: SCHIZOPHRENIA
  11. QUAZEPAM [Concomitant]
     Indication: SCHIZOPHRENIA

REACTIONS (1)
  - ANAEMIA MEGALOBLASTIC [None]
